FAERS Safety Report 24572144 (Version 1)
Quarter: 2024Q4

REPORT INFORMATION
  Report Type: Spontaneous
  Country: US (occurrence: None)
  Receive Date: 20241031
  Receipt Date: 20241031
  Transmission Date: 20250115
  Serious: Yes (Hospitalization)
  Sender: Public
  Company Number: None

PATIENT
  Age: 64 Year
  Sex: Male

DRUGS (1)
  1. OZEMPIC [Suspect]
     Active Substance: SEMAGLUTIDE
     Indication: Diabetes mellitus
     Dosage: OTHER FREQUENCY : QWEEK;?
     Dates: start: 20240426, end: 20240630

REACTIONS (4)
  - Drug hypersensitivity [None]
  - Adverse drug reaction [None]
  - Angioedema [None]
  - Neurological symptom [None]

NARRATIVE: CASE EVENT DATE: 20240630
